FAERS Safety Report 5153215-1 (Version None)
Quarter: 2006Q4

REPORT INFORMATION
  Report Type: 
  Country: None (occurrence: None)
  Receive Date: 20061117
  Receipt Date: 20061110
  Transmission Date: 20070319
  Serious: Yes (Life-Threatening)
  Sender: FDA-Public Use
  Company Number: US-MERCK-0611USA03576

PATIENT
  Age: 73 Year
  Sex: Male

DRUGS (2)
  1. CANCIDAS [Suspect]
     Indication: URINARY TRACT INFECTION FUNGAL
     Route: 042
     Dates: start: 20061109, end: 20061109
  2. CANCIDAS [Suspect]
     Route: 042
     Dates: start: 20061110, end: 20061110

REACTIONS (1)
  - ANGIONEUROTIC OEDEMA [None]
